FAERS Safety Report 13112263 (Version 1)
Quarter: 2017Q1

REPORT INFORMATION
  Report Type: Spontaneous
  Country: US (occurrence: US)
  Receive Date: 20170113
  Receipt Date: 20170113
  Transmission Date: 20170428
  Serious: Yes (Hospitalization, Other)
  Sender: FDA-Public Use
  Company Number: US-009507513-1701USA001355

PATIENT
  Sex: Female

DRUGS (4)
  1. COREG [Suspect]
     Active Substance: CARVEDILOL
     Dosage: 40 MG, UNK
     Dates: start: 201603, end: 201608
  2. COREG [Suspect]
     Active Substance: CARVEDILOL
     Dosage: 60 MG, UNK
     Dates: start: 201608
  3. CALAN [Suspect]
     Active Substance: VERAPAMIL HYDROCHLORIDE
     Dosage: 240 MG, UNK
     Dates: start: 201510
  4. HYZAAR [Suspect]
     Active Substance: HYDROCHLOROTHIAZIDE\LOSARTAN POTASSIUM
     Dosage: 100 MG, PER DAY
     Route: 048

REACTIONS (9)
  - Eye colour change [Unknown]
  - Loss of consciousness [Unknown]
  - Heart rate decreased [Unknown]
  - Hypotension [Recovered/Resolved]
  - Overdose [Unknown]
  - Slow speech [Unknown]
  - Toxicity to various agents [Unknown]
  - Pallor [Unknown]
  - Adverse event [Unknown]

NARRATIVE: CASE EVENT DATE: 2016
